FAERS Safety Report 23464269 (Version 4)
Quarter: 2024Q2

REPORT INFORMATION
  Report Type: Spontaneous
  Country: US (occurrence: US)
  Receive Date: 20240201
  Receipt Date: 20240528
  Transmission Date: 20240716
  Serious: No
  Sender: FDA-Public Use
  Company Number: US-BRISTOL-MYERS SQUIBB COMPANY-2024-015917

PATIENT
  Age: 72 Year
  Sex: Female

DRUGS (3)
  1. ORENCIA [Suspect]
     Active Substance: ABATACEPT
     Indication: Rheumatoid arthritis
     Route: 058
     Dates: start: 202309
  2. ORENCIA [Suspect]
     Active Substance: ABATACEPT
     Indication: Gastrooesophageal reflux disease
  3. LEFLUNOMIDE [Suspect]
     Active Substance: LEFLUNOMIDE
     Indication: Product used for unknown indication

REACTIONS (5)
  - Cellulitis [Unknown]
  - Skin lesion [Unknown]
  - COVID-19 [Recovering/Resolving]
  - Arthralgia [Unknown]
  - Night sweats [Unknown]
